FAERS Safety Report 6835788-3 (Version None)
Quarter: 2010Q3

REPORT INFORMATION
  Report Type: 
  Country: None (occurrence: None)
  Receive Date: 20100712
  Receipt Date: 20100712
  Transmission Date: 20110219
  Serious: No
  Sender: FDA-Public Use
  Company Number: None

PATIENT
  Age: 69 Year
  Sex: Female
  Weight: 29.4838 kg

DRUGS (1)
  1. NEURONTIN [Suspect]
     Indication: ARTHRITIS
     Dosage: 1 TABLET 3 TIMRE DAILY
     Dates: start: 20040113, end: 20100711

REACTIONS (3)
  - CONFUSIONAL STATE [None]
  - CONTUSION [None]
  - PAIN OF SKIN [None]
